FAERS Safety Report 10944115 (Version 1)
Quarter: 2015Q1

REPORT INFORMATION
  Report Type: Spontaneous
  Country: US (occurrence: US)
  Receive Date: 20150323
  Receipt Date: 20150323
  Transmission Date: 20150721
  Serious: No
  Sender: FDA-Public Use
  Company Number: US-ASTRAZENECA-2015SE23812

PATIENT
  Age: 22381 Day
  Sex: Male

DRUGS (1)
  1. BYDUREON [Suspect]
     Active Substance: EXENATIDE
     Indication: TYPE 2 DIABETES MELLITUS
     Route: 058
     Dates: start: 20140911

REACTIONS (5)
  - Hepatic enzyme increased [Unknown]
  - Glycosylated haemoglobin increased [Unknown]
  - Injection site nodule [Unknown]
  - Intentional product misuse [Unknown]
  - Weight decreased [Unknown]

NARRATIVE: CASE EVENT DATE: 20140911
